FAERS Safety Report 14115416 (Version 1)
Quarter: 2017Q4

REPORT INFORMATION
  Report Type: Spontaneous
  Country: US (occurrence: US)
  Receive Date: 20171023
  Receipt Date: 20171023
  Transmission Date: 20180321
  Serious: No
  Sender: FDA-Public Use
  Company Number: US-ABBVIE-17P-163-2049925-00

PATIENT
  Age: 52 Year
  Sex: Male

DRUGS (2)
  1. HCTZ [Concomitant]
     Active Substance: HYDROCHLOROTHIAZIDE
     Indication: HYPERTENSION
  2. TARKA [Suspect]
     Active Substance: TRANDOLAPRIL\VERAPAMIL HYDROCHLORIDE
     Indication: HYPERTENSION
     Route: 048
     Dates: start: 2014, end: 20170724

REACTIONS (2)
  - Face oedema [Recovering/Resolving]
  - Lip swelling [Recovered/Resolved]

NARRATIVE: CASE EVENT DATE: 20170724
